FAERS Safety Report 9160617 (Version 1)
Quarter: 2013Q1

REPORT INFORMATION
  Report Type: Spontaneous
  Country: PR (occurrence: PR)
  Receive Date: 20130313
  Receipt Date: 20130313
  Transmission Date: 20140127
  Serious: No
  Sender: FDA-Public Use
  Company Number: PR-ABBOTT-12P-131-0962913-00

PATIENT
  Sex: Female

DRUGS (7)
  1. DEPAKOTE [Suspect]
     Indication: MENTAL DISORDER
     Dosage: 2000 MG DAILY
     Route: 048
     Dates: end: 20120730
  2. DEPAKOTE [Suspect]
     Dosage: 1500 MG DAILY
     Route: 048
     Dates: start: 20120730
  3. EFFEXOR XR [Concomitant]
     Indication: PRODUCT USED FOR UNKNOWN INDICATION
     Dosage: 75 MG DAILY FOR 7 DAYS
     Route: 048
  4. EFFEXOR XR [Concomitant]
     Dosage: 37.5 MG DAILY FOR 7 DAYS
     Route: 048
  5. EFFEXOR XR [Concomitant]
     Dosage: 25 MG DAILY
     Route: 048
  6. ZYPREXA [Concomitant]
     Indication: PRODUCT USED FOR UNKNOWN INDICATION
     Dosage: 10 MG DAILY
     Route: 048
  7. KLONOPIN [Concomitant]
     Indication: PRODUCT USED FOR UNKNOWN INDICATION
     Route: 048

REACTIONS (2)
  - Generalised oedema [Unknown]
  - Localised oedema [Unknown]
